FAERS Safety Report 20569693 (Version 1)
Quarter: 2022Q1

REPORT INFORMATION
  Report Type: Report from Study
  Country: US (occurrence: US)
  Receive Date: 20220309
  Receipt Date: 20220309
  Transmission Date: 20220424
  Serious: Yes (Other)
  Sender: FDA-Public Use
  Company Number: US-ABBVIE-22K-163-4303709-00

PATIENT
  Sex: Female

DRUGS (1)
  1. HUMIRA [Suspect]
     Active Substance: ADALIMUMAB
     Indication: Hidradenitis
     Route: 058

REACTIONS (4)
  - Peripheral artery occlusion [Not Recovered/Not Resolved]
  - Blood cholesterol decreased [Unknown]
  - Injection site pruritus [Unknown]
  - Injection site rash [Unknown]
